FAERS Safety Report 16946265 (Version 1)
Quarter: 2019Q4

REPORT INFORMATION
  Report Type: Spontaneous
  Country: US (occurrence: US)
  Receive Date: 20190830
  Receipt Date: 20190830
  Transmission Date: 20200122
  Serious: No
  Sender: FDA-Public Use
  Company Number: None

PATIENT
  Age: 62 Year
  Sex: Female

DRUGS (1)
  1. REPATHA [Suspect]
     Active Substance: EVOLOCUMAB
     Indication: HYPERLIPIDAEMIA
     Dosage: ?          OTHER FREQUENCY:UNKNOWN;?
     Route: 058
     Dates: start: 20190607

REACTIONS (6)
  - Lip pruritus [None]
  - Nasal discomfort [None]
  - Ear disorder [None]
  - Vulvovaginal pruritus [None]
  - Vaginal odour [None]
  - Anorectal disorder [None]

NARRATIVE: CASE EVENT DATE: 20190830
